FAERS Safety Report 4393559-4 (Version None)
Quarter: 2004Q3

REPORT INFORMATION
  Report Type: 
  Country: None (occurrence: None)
  Receive Date: 20040707
  Receipt Date: 20040707
  Transmission Date: 20050211
  Serious: Yes (Death)
  Sender: FDA-Public Use
  Company Number: None

PATIENT
  Age: 70 Year
  Sex: Female
  Weight: 72.5755 kg

DRUGS (1)
  1. EDWARDS LIFESCIENCES PERICARDIAL TISSUE HEART VALVE IMPLANT [Suspect]
     Dates: start: 20040504

REACTIONS (2)
  - COMPLICATION OF DEVICE REMOVAL [None]
  - FAILURE OF IMPLANT [None]
